FAERS Safety Report 6841595-8 (Version None)
Quarter: 2010Q3

REPORT INFORMATION
  Report Type: 
  Country: None (occurrence: None)
  Receive Date: 20100714
  Receipt Date: 20070716
  Transmission Date: 20110219
  Serious: No
  Sender: FDA-Public Use
  Company Number: US-PFIZER INC-2007056975

PATIENT
  Sex: Female
  Weight: 65.9 kg

DRUGS (7)
  1. CHANTIX [Suspect]
     Indication: SMOKING CESSATION THERAPY
     Dates: start: 20070702
  2. BACLOFEN [Concomitant]
  3. TRAZODONE HYDROCHLORIDE [Concomitant]
  4. RISPERIDONE [Concomitant]
  5. PERCOCET [Concomitant]
  6. ZOLOFT [Concomitant]
     Dates: start: 20070301
  7. LYRICA [Concomitant]

REACTIONS (3)
  - DIZZINESS [None]
  - DRUG PRESCRIBING ERROR [None]
  - GAIT DISTURBANCE [None]
